FAERS Safety Report 5934309-7 (Version None)
Quarter: 2008Q4

REPORT INFORMATION
  Report Type: 
  Country: None (occurrence: None)
  Receive Date: 20081029
  Receipt Date: 20081020
  Transmission Date: 20090506
  Serious: Yes (Other)
  Sender: FDA-Public Use
  Company Number: PHEH2008US09370

PATIENT
  Sex: Female

DRUGS (1)
  1. DIOVAN [Suspect]
     Dosage: 80 MG

REACTIONS (3)
  - ABDOMINAL DISTENSION [None]
  - BLOOD POTASSIUM DECREASED [None]
  - PAIN [None]
